FAERS Safety Report 23906431 (Version 1)
Quarter: 2024Q2

REPORT INFORMATION
  Report Type: Spontaneous
  Country: US (occurrence: US)
  Receive Date: 20240528
  Receipt Date: 20240528
  Transmission Date: 20240716
  Serious: No
  Sender: FDA-Public Use
  Company Number: US-PRINSTON PHARMACEUTICAL INC.-2024PRN00146

PATIENT
  Age: 5 Decade
  Sex: Male

DRUGS (1)
  1. TADALAFIL [Suspect]
     Active Substance: TADALAFIL
     Indication: Erectile dysfunction
     Dosage: 5 MG, 1X/DAY
     Route: 048
     Dates: start: 202403, end: 20240321

REACTIONS (3)
  - Genital infection fungal [Recovering/Resolving]
  - Penile odour [Recovering/Resolving]
  - Smegma accumulation [Unknown]

NARRATIVE: CASE EVENT DATE: 20240301
